FAERS Safety Report 8052432-0 (Version None)
Quarter: 2012Q1

REPORT INFORMATION
  Report Type: 
  Country: None (occurrence: None)
  Receive Date: 20120118
  Receipt Date: 20120104
  Transmission Date: 20120608
  Serious: Yes (Hospitalization)
  Sender: FDA-Public Use
  Company Number: FR-PFIZER INC-2012012781

PATIENT
  Age: 62 Year
  Sex: Male

DRUGS (11)
  1. KETOPROFEN [Suspect]
     Indication: PRODUCT USED FOR UNKNOWN INDICATION
     Route: 048
     Dates: start: 20100401
  2. GLICLAZIDE [Suspect]
     Indication: TYPE 2 DIABETES MELLITUS
     Route: 048
     Dates: start: 20100401, end: 20100420
  3. CRESTOR [Suspect]
     Indication: HYPERCHOLESTEROLAEMIA
     Route: 048
     Dates: start: 20070101
  4. PERMIXON [Suspect]
     Indication: PROSTATIC ADENOMA
     Route: 048
     Dates: start: 20090201
  5. FLUCONAZOLE [Suspect]
     Route: 048
     Dates: start: 20100311, end: 20100317
  6. LYRICA [Suspect]
     Indication: PRODUCT USED FOR UNKNOWN INDICATION
     Route: 048
     Dates: start: 20100401
  7. TRAMADOL HYDROCHLORIDE AND ACETAMINOPHEN [Suspect]
     Indication: PRODUCT USED FOR UNKNOWN INDICATION
     Route: 048
     Dates: start: 20100401
  8. AMLODIPINE BESYLATE [Suspect]
     Route: 048
     Dates: start: 20090201
  9. COTRIM [Suspect]
     Indication: PRODUCT USED FOR UNKNOWN INDICATION
     Route: 048
     Dates: start: 20091208, end: 20091222
  10. FLUDARA [Suspect]
     Indication: CHRONIC LYMPHOCYTIC LEUKAEMIA
     Route: 048
     Dates: start: 20090801, end: 20091201
  11. EFFEXOR [Suspect]
     Route: 048
     Dates: start: 20100119, end: 20100217

REACTIONS (1)
  - HEPATITIS [None]
